FAERS Safety Report 23928775 (Version 2)
Quarter: 2025Q3

REPORT INFORMATION
  Report Type: Spontaneous
  Country: US (occurrence: US)
  Receive Date: 20240531
  Receipt Date: 20250703
  Transmission Date: 20251021
  Serious: No
  Sender: RADIUS PHARM
  Company Number: US-RADIUS HEALTH INC.-2024US001182

PATIENT
  Sex: Female
  Weight: 63.492 kg

DRUGS (4)
  1. TYMLOS [Suspect]
     Active Substance: ABALOPARATIDE
     Indication: Product used for unknown indication
     Route: 065
  2. TYMLOS [Suspect]
     Active Substance: ABALOPARATIDE
  3. TYMLOS [Suspect]
     Active Substance: ABALOPARATIDE
  4. TYMLOS [Suspect]
     Active Substance: ABALOPARATIDE
     Dates: end: 202403

REACTIONS (5)
  - Migraine [Unknown]
  - Headache [Unknown]
  - Tinnitus [Unknown]
  - Immature granulocyte count increased [Unknown]
  - Intentional product misuse [Not Recovered/Not Resolved]
